FAERS Safety Report 10246657 (Version 1)
Quarter: 2014Q2

REPORT INFORMATION
  Report Type: Spontaneous
  Country: US (occurrence: US)
  Receive Date: 20140619
  Receipt Date: 20140619
  Transmission Date: 20141212
  Serious: No
  Sender: FDA-Public Use
  Company Number: US-SHIRE-US201403058

PATIENT
  Age: 85 Year
  Sex: Female
  Weight: 46.26 kg

DRUGS (7)
  1. LIALDA [Suspect]
     Indication: COLITIS ULCERATIVE
     Dosage: 2.4 G(TWO OF 1.2 G TABLETS), UNKNOWN(PER DAY)
     Route: 048
     Dates: start: 20140612
  2. LIALDA [Suspect]
     Indication: COLITIS MICROSCOPIC
  3. LIALDA [Suspect]
     Indication: GASTROINTESTINAL DISORDER
  4. NAPROXIN                           /00256201/ [Concomitant]
     Indication: PRODUCT USED FOR UNKNOWN INDICATION
     Dosage: UNK, UNKNOWN
     Route: 065
  5. ALLOPURINOL [Concomitant]
     Indication: PRODUCT USED FOR UNKNOWN INDICATION
     Dosage: UNK, UNKNOWN
     Route: 065
  6. FENIRAMIN [Concomitant]
     Indication: PRODUCT USED FOR UNKNOWN INDICATION
     Dosage: UNK, UNKNOWN
     Route: 065
  7. MULTIVITAMIN                       /07504101/ [Concomitant]
     Indication: PRODUCT USED FOR UNKNOWN INDICATION
     Dosage: UNK, UNKNOWN
     Route: 065

REACTIONS (3)
  - Chromaturia [Unknown]
  - Faeces discoloured [Unknown]
  - Fatigue [Unknown]
